FAERS Safety Report 4465232-5 (Version None)
Quarter: 2004Q4

REPORT INFORMATION
  Report Type: 
  Country: None (occurrence: None)
  Receive Date: 20041004
  Receipt Date: 20040920
  Transmission Date: 20050328
  Serious: Yes (Other)
  Sender: FDA-Public Use
  Company Number: US-JNJFOC-20040906941

PATIENT
  Age: 39 Year
  Sex: Female
  Weight: 55.34 kg

DRUGS (5)
  1. TOPAMAX [Suspect]
     Indication: MIGRAINE
  2. TOPAMAX [Suspect]
  3. ASPIRIN [Concomitant]
  4. POTASSIUM [Concomitant]
  5. UNSPECIFIED MEDICATION [Concomitant]

REACTIONS (9)
  - AMNESIA [None]
  - ASTHENIA [None]
  - BRAIN MASS [None]
  - DYSGEUSIA [None]
  - DYSPEPSIA [None]
  - FATIGUE [None]
  - SPEECH DISORDER [None]
  - WEIGHT DECREASED [None]
  - WEIGHT INCREASED [None]
